FAERS Safety Report 24223924 (Version 2)
Quarter: 2024Q3

REPORT INFORMATION
  Report Type: Spontaneous
  Country: JP (occurrence: JP)
  Receive Date: 20240819
  Receipt Date: 20240826
  Transmission Date: 20241016
  Serious: Yes (Hospitalization, Other)
  Sender: KYOWA
  Company Number: JP-MLMSERVICE-20240807-PI155191-00285-1

PATIENT

DRUGS (14)
  1. ISTRADEFYLLINE [Suspect]
     Active Substance: ISTRADEFYLLINE
     Indication: Parkinson^s disease
     Dosage: 40 MG
     Route: 065
  2. AMANTADINE [Interacting]
     Active Substance: AMANTADINE
     Indication: Parkinson^s disease
     Dosage: 200 MG, QD
     Route: 065
  3. AMLODIPINE [Interacting]
     Active Substance: AMLODIPINE BESYLATE
     Indication: Product used for unknown indication
     Dosage: 5 MG, QD
     Route: 065
  4. LUBIPROSTONE [Interacting]
     Active Substance: LUBIPROSTONE
     Indication: Product used for unknown indication
     Dosage: 24 MG, QD
     Route: 065
  5. VONOPRAZAN [Interacting]
     Active Substance: VONOPRAZAN
     Indication: Product used for unknown indication
     Dosage: 20 MG, QD
     Route: 065
  6. MAGNESIUM OXIDE [Interacting]
     Active Substance: MAGNESIUM OXIDE
     Indication: Product used for unknown indication
     Dosage: 1.32 G, QD
     Route: 065
  7. STALEVO [Interacting]
     Active Substance: CARBIDOPA\ENTACAPONE\LEVODOPA
     Indication: Product used for unknown indication
     Dosage: 6 DF, QD (LEVODOPA 600 MG/DAY, ENTAKAPON 600 MG/DAY)
     Route: 065
  8. DROXIDOPA [Interacting]
     Active Substance: DROXIDOPA
     Indication: Orthostatic hypotension
     Dosage: 100 MG, QD
     Route: 065
  9. SENNOSIDES [Interacting]
     Active Substance: SENNOSIDES
     Indication: Product used for unknown indication
     Dosage: 24 MG, QD
     Route: 065
  10. RISPERIDONE [Interacting]
     Active Substance: RISPERIDONE
     Indication: Product used for unknown indication
     Dosage: 1 MG, QD
     Route: 065
  11. RASAGILINE [Interacting]
     Active Substance: RASAGILINE\RASAGILINE MESYLATE
     Indication: Product used for unknown indication
     Dosage: 1 MG, QD
     Route: 065
  12. FENOFIBRATE [Interacting]
     Active Substance: FENOFIBRATE
     Indication: Product used for unknown indication
     Dosage: 160 MG, QD
     Route: 065
  13. MOSAPRIDE [Interacting]
     Active Substance: MOSAPRIDE
     Indication: Product used for unknown indication
     Dosage: 5 MG, QD
     Route: 065
  14. ELOBIXIBAT [Interacting]
     Active Substance: ELOBIXIBAT
     Indication: Product used for unknown indication
     Dosage: 10 MG, QD
     Route: 065

REACTIONS (15)
  - Cerebral atrophy [Recovering/Resolving]
  - Generalised tonic-clonic seizure [Recovered/Resolved]
  - Epilepsy [Recovered/Resolved]
  - Renal impairment [Recovering/Resolving]
  - Delirium [Recovered/Resolved]
  - Toxicity to various agents [Recovering/Resolving]
  - Drug interaction [Recovering/Resolving]
  - Decreased appetite [Recovering/Resolving]
  - Dysphagia [Unknown]
  - Anal incontinence [Unknown]
  - Urinary incontinence [Unknown]
  - Weight decreased [Unknown]
  - Decreased appetite [Unknown]
  - Tremor [Unknown]
  - Orthostatic hypotension [Unknown]
